FAERS Safety Report 8275164-2 (Version None)
Quarter: 2012Q2

REPORT INFORMATION
  Report Type: 
  Country: None (occurrence: None)
  Receive Date: 20120411
  Receipt Date: 20120410
  Transmission Date: 20120825
  Serious: Yes (Death)
  Sender: FDA-Public Use
  Company Number: PHHY2012IT028905

PATIENT
  Age: 45 Year
  Sex: Female

DRUGS (1)
  1. METHYLPREDNISOLONE [Suspect]
     Indication: ENDOCRINE OPHTHALMOPATHY
     Dosage: 800 MG, DAILY FOR 3 DAYS EVERY 2 WEEKS
     Route: 042

REACTIONS (1)
  - CEREBROVASCULAR DISORDER [None]
